FAERS Safety Report 7581550-6 (Version None)
Quarter: 2011Q2

REPORT INFORMATION
  Report Type: 
  Country: None (occurrence: None)
  Receive Date: 20110629
  Receipt Date: 20110622
  Transmission Date: 20111010
  Serious: Yes (Hospitalization)
  Sender: FDA-Public Use
  Company Number: PHHO2010DE14826

PATIENT
  Sex: Male
  Weight: 95 kg

DRUGS (1)
  1. GILENYA [Suspect]
     Indication: MULTIPLE SCLEROSIS
     Dosage: 0.5 MG,
     Route: 048
     Dates: start: 20100712

REACTIONS (3)
  - TRANSIENT ISCHAEMIC ATTACK [None]
  - HYPERTENSION [None]
  - APHASIA [None]
